FAERS Safety Report 6820786-6 (Version None)
Quarter: 2010Q3

REPORT INFORMATION
  Report Type: 
  Country: None (occurrence: None)
  Receive Date: 20100707
  Receipt Date: 20070521
  Transmission Date: 20110219
  Serious: No
  Sender: FDA-Public Use
  Company Number: US-PFIZER INC-2007041405

PATIENT
  Sex: Female
  Weight: 59 kg

DRUGS (1)
  1. ZOLOFT [Suspect]
     Indication: OBSESSIVE-COMPULSIVE DISORDER
     Dates: start: 20040101, end: 20070517

REACTIONS (5)
  - DIZZINESS [None]
  - HEADACHE [None]
  - INCREASED APPETITE [None]
  - WEIGHT DECREASED [None]
  - WEIGHT INCREASED [None]
